FAERS Safety Report 17452831 (Version 1)
Quarter: 2020Q1

REPORT INFORMATION
  Report Type: Spontaneous
  Country: DE (occurrence: DE)
  Receive Date: 20200224
  Receipt Date: 20200224
  Transmission Date: 20200409
  Serious: Yes (Other)
  Sender: FDA-Public Use
  Company Number: NVSC2020DE043951

PATIENT

DRUGS (4)
  1. LAMOTRIGINE. [Suspect]
     Active Substance: LAMOTRIGINE
     Indication: EPILEPSY
     Dosage: 400 MG, QD (200 MILLIGRAM, 2X/DAY (BID))
     Route: 065
  2. LEVETIRACETAM. [Suspect]
     Active Substance: LEVETIRACETAM
     Indication: EPILEPSY
     Dosage: 3000 MG, QD (1500 MILLIGRAM, 2X/DAY (BID))
     Route: 065
  3. TAVOR [Concomitant]
     Indication: PRODUCT USED FOR UNKNOWN INDICATION
     Dosage: UNK
     Route: 065
  4. VIMPAT [Suspect]
     Active Substance: LACOSAMIDE
     Indication: EPILEPSY
     Dosage: 50 MG
     Route: 065

REACTIONS (9)
  - Seizure [Unknown]
  - Tongue biting [Unknown]
  - Hypersensitivity [Unknown]
  - Restlessness [Unknown]
  - Arrhythmia [Unknown]
  - Rash [Unknown]
  - Alopecia [Unknown]
  - Pyrexia [Unknown]
  - Cardiovascular disorder [Unknown]
